FAERS Safety Report 4696214-6 (Version None)
Quarter: 2005Q2

REPORT INFORMATION
  Report Type: 
  Country: None (occurrence: None)
  Receive Date: 20050621
  Receipt Date: 20050601
  Transmission Date: 20051028
  Serious: Yes (Other)
  Sender: FDA-Public Use
  Company Number: 2005AP03205

PATIENT
  Age: 36 Year
  Sex: Female

DRUGS (1)
  1. CARBOCAIN [Suspect]
     Dates: start: 20050101, end: 20050101

REACTIONS (2)
  - ASTHMA [None]
  - FACE OEDEMA [None]
